FAERS Safety Report 7047033-7 (Version None)
Quarter: 2010Q4

REPORT INFORMATION
  Report Type: 
  Country: None (occurrence: None)
  Receive Date: 20101015
  Receipt Date: 20101006
  Transmission Date: 20110411
  Serious: Yes (Other)
  Sender: FDA-Public Use
  Company Number: FR-JNJFOC-20100904011

PATIENT
  Age: 68 Year
  Sex: Female

DRUGS (10)
  1. CAELYX [Suspect]
     Indication: HODGKIN'S DISEASE NODULAR SCLEROSIS STAGE UNSPECIFIED
     Dosage: CYCLE 3
     Route: 042
  2. CAELYX [Suspect]
     Dosage: CYCLE 2
     Route: 042
  3. CAELYX [Suspect]
     Dosage: CYCLE 1
     Route: 042
  4. NAVELBINE [Suspect]
     Indication: HODGKIN'S DISEASE NODULAR SCLEROSIS STAGE UNSPECIFIED
     Dosage: CYCLE 1
     Route: 042
  5. NAVELBINE [Suspect]
     Dosage: CYCLE 3
     Route: 042
  6. NAVELBINE [Suspect]
     Dosage: CYCLE 2
     Route: 042
  7. GEMCITABINE [Suspect]
     Indication: HODGKIN'S DISEASE NODULAR SCLEROSIS STAGE UNSPECIFIED
     Dosage: CYCLE 1
     Route: 042
  8. GEMCITABINE [Suspect]
     Dosage: CYCLE 2
     Route: 042
  9. GEMCITABINE [Suspect]
     Dosage: CYCLE 3
     Route: 042
  10. BARACLUDE [Concomitant]
     Indication: HEPATITIS B
     Route: 065

REACTIONS (4)
  - MYALGIA [None]
  - PANCYTOPENIA [None]
  - RASH PAPULAR [None]
  - VISUAL IMPAIRMENT [None]
